FAERS Safety Report 12119190 (Version 1)
Quarter: 2016Q1

REPORT INFORMATION
  Report Type: Spontaneous
  Country: US (occurrence: None)
  Receive Date: 20160225
  Receipt Date: 20160225
  Transmission Date: 20160526
  Serious: No
  Sender: FDA-Public Use
  Company Number: None

PATIENT
  Age: 31 Year
  Sex: Female
  Weight: 50.35 kg

DRUGS (1)
  1. CYMBALTA [Suspect]
     Active Substance: DULOXETINE HYDROCHLORIDE
     Indication: DEPRESSION
     Dosage: TAKE 1 PILL DAILY
     Route: 048

REACTIONS (10)
  - Exposure during pregnancy [None]
  - Restless legs syndrome [None]
  - Drug withdrawal syndrome [None]
  - Hot flush [None]
  - Insomnia [None]
  - Night sweats [None]
  - Cold sweat [None]
  - Crying [None]
  - Pregnancy [None]
  - Syncope [None]

NARRATIVE: CASE EVENT DATE: 20160216
